FAERS Safety Report 6692302-3 (Version None)
Quarter: 2010Q2

REPORT INFORMATION
  Report Type: 
  Country: None (occurrence: None)
  Receive Date: 20100419
  Receipt Date: 20100409
  Transmission Date: 20101027
  Serious: Yes (Other)
  Sender: FDA-Public Use
  Company Number: 2010SP020945

PATIENT
  Age: 73 Year
  Sex: Female
  Weight: 50 kg

DRUGS (6)
  1. MUSCULAX      (VECURONIUM BROMIDE) [Suspect]
     Indication: NEUROMUSCULAR BLOCKING THERAPY
     Dosage: 7 MG; IV
     Route: 042
     Dates: start: 20070124, end: 20070124
  2. ISOZOL [Concomitant]
  3. FENTANYL [Concomitant]
  4. ATROPINE SULFATE [Concomitant]
  5. VAGOSTIGMIN [Concomitant]
  6. SEVOFLURANE [Concomitant]

REACTIONS (3)
  - STRESS CARDIOMYOPATHY [None]
  - VENTRICULAR HYPOKINESIA [None]
  - VENTRICULAR TACHYCARDIA [None]
